FAERS Safety Report 9312591 (Version 2)
Quarter: 2013Q3

REPORT INFORMATION
  Report Type: Spontaneous
  Country: US (occurrence: US)
  Receive Date: 20130528
  Receipt Date: 20130801
  Transmission Date: 20140515
  Serious: Yes (Death)
  Sender: FDA-Public Use
  Company Number: US-GLAXOSMITHKLINE-A1024148A

PATIENT
  Age: 66 Year
  Sex: Male

DRUGS (3)
  1. VOTRIENT [Suspect]
     Indication: RENAL CELL CARCINOMA
     Dosage: 400MG TWICE PER DAY
     Route: 048
     Dates: start: 201301, end: 201303
  2. MIRALAX [Concomitant]
  3. SINUS MEDICATION [Concomitant]

REACTIONS (4)
  - Death [Fatal]
  - Nausea [Unknown]
  - Erythema [Unknown]
  - Rash [Unknown]
